FAERS Safety Report 7052209-9 (Version None)
Quarter: 2010Q4

REPORT INFORMATION
  Report Type: 
  Country: None (occurrence: None)
  Receive Date: 20101018
  Receipt Date: 20101018
  Transmission Date: 20110411
  Serious: Yes (Other)
  Sender: FDA-Public Use
  Company Number: None

PATIENT
  Sex: Female
  Weight: 58.514 kg

DRUGS (1)
  1. EFFEXOR [Suspect]
     Indication: DEPRESSION
     Dosage: 150MG DAILY PO
     Route: 048
     Dates: start: 20090125, end: 20090223

REACTIONS (4)
  - DELUSION [None]
  - DISSOCIATION [None]
  - PARANOIA [None]
  - SUICIDAL BEHAVIOUR [None]
